FAERS Safety Report 7729911-6 (Version None)
Quarter: 2011Q3

REPORT INFORMATION
  Report Type: 
  Country: None (occurrence: None)
  Receive Date: 20110906
  Receipt Date: 20110830
  Transmission Date: 20111222
  Serious: Yes (Death, Hospitalization)
  Sender: FDA-Public Use
  Company Number: US-ROCHE-799736

PATIENT
  Sex: Female
  Weight: 95.3 kg

DRUGS (5)
  1. ACTEMRA [Suspect]
     Route: 042
     Dates: start: 20110203
  2. ACTEMRA [Suspect]
     Route: 042
     Dates: start: 20110106
  3. ACTEMRA [Suspect]
     Route: 042
     Dates: start: 20110429
  4. ACTEMRA [Suspect]
     Route: 042
     Dates: start: 20110304
  5. ACTEMRA [Suspect]
     Route: 042
     Dates: start: 20110401

REACTIONS (3)
  - ANKLE FRACTURE [None]
  - CARDIAC ARREST [None]
  - PNEUMONIA [None]
